FAERS Safety Report 8891039 (Version 1)
Quarter: 2012Q4

REPORT INFORMATION
  Report Type: Report from Study
  Country: US (occurrence: US)
  Receive Date: 20121107
  Receipt Date: 20121107
  Transmission Date: 20130627
  Serious: Yes (Hospitalization, Disabling, Other)
  Sender: FDA-Public Use
  Company Number: US-ABBOTT-12P-163-1002936-00

PATIENT
  Sex: Female
  Weight: 59.02 kg

DRUGS (5)
  1. HUMIRA [Suspect]
     Indication: RHEUMATOID ARTHRITIS
     Dates: start: 2005
  2. PRAVASATIN [Concomitant]
     Indication: BLOOD CHOLESTEROL INCREASED
  3. TOPROL [Concomitant]
     Indication: HYPERTENSION
  4. ZYRTEC [Concomitant]
     Indication: HYPERSENSITIVITY
  5. ALLERGY SHOTS [Concomitant]
     Indication: HYPERSENSITIVITY
     Route: 050

REACTIONS (5)
  - Visual impairment [Not Recovered/Not Resolved]
  - Cataract [Not Recovered/Not Resolved]
  - Eyelid ptosis [Not Recovered/Not Resolved]
  - Arthritis [Recovered/Resolved]
  - Arthritis [Recovered/Resolved]
